FAERS Safety Report 4644233-8 (Version None)
Quarter: 2005Q2

REPORT INFORMATION
  Report Type: 
  Country: None (occurrence: None)
  Receive Date: 20050331
  Receipt Date: 20050104
  Transmission Date: 20051028
  Serious: No
  Sender: FDA-Public Use
  Company Number: 05P-163-0285400-00

PATIENT
  Age: 63 Year
  Sex: Female
  Weight: 61.2356 kg

DRUGS (6)
  1. HUMIRA [Suspect]
     Indication: RHEUMATOID ARTHRITIS
     Dosage: 40 MG, 1 IN 2 WK, SUBCUTANEOUS
     Route: 058
     Dates: start: 20041108
  2. PREDNISONE [Concomitant]
  3. CALCITONIN-SALMON [Concomitant]
  4. MULTIVITAMIN [Concomitant]
  5. TOCOPHEROL CONCENTRATE CAP [Concomitant]
  6. ASCORBIC ACID [Concomitant]

REACTIONS (8)
  - BURNING SENSATION [None]
  - CONDITION AGGRAVATED [None]
  - FATIGUE [None]
  - HEADACHE [None]
  - LIVER FUNCTION TEST ABNORMAL [None]
  - NIGHT SWEATS [None]
  - PAIN [None]
  - SJOGREN'S SYNDROME [None]
